FAERS Safety Report 25703257 (Version 2)
Quarter: 2025Q4

REPORT INFORMATION
  Report Type: Report from Study
  Country: EU (occurrence: EU)
  Receive Date: 20250820
  Receipt Date: 20251009
  Transmission Date: 20260117
  Serious: Yes (Death, Hospitalization, Other)
  Sender: ABBVIE
  Company Number: EU-ABBVIE-6420468

PATIENT
  Age: 67 Year
  Sex: Female

DRUGS (2)
  1. RINVOQ [Suspect]
     Active Substance: UPADACITINIB
     Indication: Product used for unknown indication
     Dosage: 15 MG
     Route: 048
     Dates: start: 202111, end: 202411
  2. METHOTREXATE [Concomitant]
     Active Substance: METHOTREXATE
     Indication: Product used for unknown indication
     Dosage: MTX 15,0

REACTIONS (5)
  - Death [Fatal]
  - Pulmonary embolism [Not Recovered/Not Resolved]
  - Deep vein thrombosis [Not Recovered/Not Resolved]
  - Puncture site abscess [Not Recovered/Not Resolved]
  - Cor pulmonale acute [Unknown]

NARRATIVE: CASE EVENT DATE: 20241128
